FAERS Safety Report 8215367-6 (Version None)
Quarter: 2012Q1

REPORT INFORMATION
  Report Type: 
  Country: None (occurrence: None)
  Receive Date: 20120316
  Receipt Date: 20120314
  Transmission Date: 20120608
  Serious: Yes (Other)
  Sender: FDA-Public Use
  Company Number: US-PFIZER INC-2012015455

PATIENT
  Sex: Female

DRUGS (2)
  1. VENLAFAXINE HCL [Suspect]
     Indication: DEPRESSION
     Dosage: 375 MG, 1X/DAY
     Route: 048
  2. EFFEXOR XR [Suspect]
     Indication: DEPRESSION
     Dosage: 375 MG, 1X/DAY
     Route: 048
     Dates: start: 19970101

REACTIONS (6)
  - MULTIPLE SCLEROSIS [None]
  - NERVOUSNESS [None]
  - DIABETES MELLITUS [None]
  - DEPRESSION [None]
  - ANXIETY [None]
  - SURGERY [None]
